FAERS Safety Report 8022614-2 (Version None)
Quarter: 2012Q1

REPORT INFORMATION
  Report Type: 
  Country: None (occurrence: None)
  Receive Date: 20120104
  Receipt Date: 20111227
  Transmission Date: 20120608
  Serious: Yes (Life-Threatening, Hospitalization)
  Sender: FDA-Public Use
  Company Number: JP-GLAXOSMITHKLINE-B0767982A

PATIENT
  Sex: Male

DRUGS (1)
  1. LAMIVUDINE, STAVUDINE, AND NEVIRAPINE [Suspect]
     Indication: HEPATITIS B
     Dosage: 100MG PER DAY
     Route: 048
     Dates: start: 20061124

REACTIONS (8)
  - ELECTROCARDIOGRAM ST SEGMENT ELEVATION [None]
  - LOSS OF CONSCIOUSNESS [None]
  - CONDUCTION DISORDER [None]
  - VIRAL INFECTION [None]
  - ATRIOVENTRICULAR BLOCK SECOND DEGREE [None]
  - ELECTROCARDIOGRAM CHANGE [None]
  - BRUGADA SYNDROME [None]
  - ELECTROCARDIOGRAM ABNORMAL [None]
